FAERS Safety Report 6253045-3 (Version None)
Quarter: 2009Q3

REPORT INFORMATION
  Report Type: 
  Country: None (occurrence: None)
  Receive Date: 20090701
  Receipt Date: 20090619
  Transmission Date: 20100115
  Serious: Yes (Hospitalization, Other)
  Sender: FDA-Public Use
  Company Number: FR-PFIZER INC-2009213774

PATIENT
  Age: 52 Year

DRUGS (1)
  1. LYRICA [Suspect]
     Indication: SCIATICA
     Dosage: UNK

REACTIONS (1)
  - EPILEPSY [None]
